FAERS Safety Report 9051814 (Version 3)
Quarter: 2013Q1

REPORT INFORMATION
  Report Type: Spontaneous
  Country: US (occurrence: US)
  Receive Date: 20130207
  Receipt Date: 20130225
  Transmission Date: 20140127
  Serious: No
  Sender: FDA-Public Use
  Company Number: US-009507513-1302USA002129

PATIENT
  Sex: Male

DRUGS (2)
  1. JANUVIA [Suspect]
     Indication: DIABETES MELLITUS
     Dosage: 25 MG, ONCE DAILY
     Route: 048
     Dates: start: 20130201, end: 20130205
  2. INSULIN [Concomitant]
     Indication: DIABETES MELLITUS

REACTIONS (6)
  - Poor quality sleep [Recovering/Resolving]
  - Headache [Recovering/Resolving]
  - Nausea [Recovering/Resolving]
  - Diarrhoea [Recovering/Resolving]
  - Flatulence [Recovered/Resolved]
  - Hyperchlorhydria [Recovered/Resolved]
